FAERS Safety Report 7484413-X (Version None)
Quarter: 2011Q2

REPORT INFORMATION
  Report Type: 
  Country: None (occurrence: None)
  Receive Date: 20110517
  Receipt Date: 20110503
  Transmission Date: 20111010
  Serious: Yes (Other)
  Sender: FDA-Public Use
  Company Number: GB-MYLANLABS-2011S1003641

PATIENT
  Sex: Male
  Weight: 101 kg

DRUGS (16)
  1. BISOPROLOL FUMARATE [Suspect]
     Indication: MYOCARDIAL ISCHAEMIA
     Route: 048
     Dates: start: 20081101, end: 20100801
  2. TRAMADOL HYDROCHLORIDE [Concomitant]
     Indication: PAIN
  3. NEBIVOLOL HCL [Concomitant]
     Indication: PRODUCT USED FOR UNKNOWN INDICATION
     Dosage: DROPPED FROM 5 MG
  4. ASPIRIN [Concomitant]
     Indication: MYOCARDIAL ISCHAEMIA
     Route: 048
     Dates: start: 20081101
  5. ROSUVASTATIN [Concomitant]
     Indication: PRODUCT USED FOR UNKNOWN INDICATION
  6. ACETAMINOPHEN [Concomitant]
     Indication: PAIN
  7. IBUPROFEN [Concomitant]
     Indication: PAIN
  8. BISOPROLOL FUMARATE [Suspect]
     Indication: ACUTE MYOCARDIAL INFARCTION
     Route: 048
     Dates: start: 20081101, end: 20100801
  9. COVERSYL ARGININE [Concomitant]
     Indication: MYOCARDIAL ISCHAEMIA
     Route: 048
     Dates: start: 20090601
  10. MEPERIDINE HYDROCHLORIDE [Concomitant]
     Indication: PAIN
  11. CLOPIDOGREL [Concomitant]
     Indication: CARDIAC DISORDER
  12. RAMIPRIL [Suspect]
     Indication: CARDIAC DISORDER
  13. PEPPERMINT OIL [Concomitant]
     Indication: PRODUCT USED FOR UNKNOWN INDICATION
     Dosage: 3-4 DROPS
  14. YARROW TCT [Concomitant]
     Indication: PRODUCT USED FOR UNKNOWN INDICATION
  15. HYDROMOL /00906601/ [Concomitant]
     Indication: PSORIASIS
  16. DERMOVATE [Concomitant]
     Indication: PSORIASIS

REACTIONS (2)
  - PSORIASIS [None]
  - OSTEOARTHRITIS [None]
